FAERS Safety Report 6861913-4 (Version None)
Quarter: 2010Q3

REPORT INFORMATION
  Report Type: 
  Country: None (occurrence: None)
  Receive Date: 20100720
  Receipt Date: 20100720
  Transmission Date: 20110219
  Serious: Yes (Hospitalization)
  Sender: FDA-Public Use
  Company Number: None

PATIENT
  Age: 51 Year
  Sex: Male
  Weight: 98.4306 kg

DRUGS (1)
  1. PAROXETINE HCL [Suspect]
     Indication: DEPRESSION
     Dosage: ONE TAB EVERY DAY PO
     Route: 048
     Dates: start: 20100701, end: 20100702

REACTIONS (4)
  - DYSPNOEA [None]
  - HYPERTENSION [None]
  - PALPITATIONS [None]
  - SEROTONIN SYNDROME [None]
